FAERS Safety Report 20951213 (Version 3)
Quarter: 2023Q2

REPORT INFORMATION
  Report Type: Report from Study
  Country: IL (occurrence: IL)
  Receive Date: 20220613
  Receipt Date: 20230519
  Transmission Date: 20230722
  Serious: Yes (Death)
  Sender: FDA-Public Use
  Company Number: IL-ABBVIE-22K-082-4431228-00

PATIENT
  Age: 85 Year
  Sex: Female
  Weight: 60 kg

DRUGS (22)
  1. VENETOCLAX [Suspect]
     Active Substance: VENETOCLAX
     Indication: Chronic lymphocytic leukaemia
     Dosage: 20 MILLIGRAM?RAMP-UP
     Route: 048
     Dates: start: 20211129, end: 20211205
  2. VENETOCLAX [Suspect]
     Active Substance: VENETOCLAX
     Indication: Chronic lymphocytic leukaemia
     Dosage: 50 MILLIGRAM?RAMP-UP
     Route: 048
     Dates: start: 20211206, end: 20211211
  3. VENETOCLAX [Suspect]
     Active Substance: VENETOCLAX
     Indication: Chronic lymphocytic leukaemia
     Dosage: 300 MILLIGRAM?RAMP-UP
     Route: 048
     Dates: start: 20220105, end: 20220324
  4. VENETOCLAX [Suspect]
     Active Substance: VENETOCLAX
     Indication: Chronic lymphocytic leukaemia
     Dosage: RAMP-UP
     Route: 048
     Dates: start: 20211212, end: 20211220
  5. VENETOCLAX [Suspect]
     Active Substance: VENETOCLAX
     Indication: Chronic lymphocytic leukaemia
     Dosage: 200 MILLIGRAM?RAMP-UP
     Route: 048
     Dates: start: 20211221, end: 20220104
  6. CLOPIDEXCEL [Concomitant]
     Indication: Cerebrovascular accident
     Dates: start: 202102, end: 20220526
  7. PFIZER-BIONTECH COVID-19 VACCINE [Concomitant]
     Active Substance: TOZINAMERAN
     Indication: COVID-19 prophylaxis
     Dosage: TIME INTERVAL: 1 TOTAL
     Route: 030
     Dates: start: 20211003, end: 20211003
  8. BISOPROLOL FUMARATE [Concomitant]
     Active Substance: BISOPROLOL FUMARATE
     Indication: Hypertension
     Dates: start: 202106, end: 20220526
  9. Abrol [Concomitant]
     Indication: Premedication
     Dates: start: 20211108, end: 20220301
  10. ALLOPURINOL [Concomitant]
     Active Substance: ALLOPURINOL
     Indication: Prophylaxis
     Dates: start: 20211107, end: 20220526
  11. OBINUTUZUMAB [Suspect]
     Active Substance: OBINUTUZUMAB
     Indication: Chronic lymphocytic leukaemia
     Dosage: CYCLE NUMBER 2
     Route: 065
     Dates: start: 20211206, end: 20211206
  12. OBINUTUZUMAB [Suspect]
     Active Substance: OBINUTUZUMAB
     Indication: Chronic lymphocytic leukaemia
     Dosage: CYCLE NUMBER 4
     Route: 065
     Dates: start: 20220201, end: 20220201
  13. OBINUTUZUMAB [Suspect]
     Active Substance: OBINUTUZUMAB
     Indication: Chronic lymphocytic leukaemia
     Dosage: CYCLE NUMBER 1
     Route: 065
     Dates: start: 20211108, end: 20211108
  14. OBINUTUZUMAB [Suspect]
     Active Substance: OBINUTUZUMAB
     Indication: Chronic lymphocytic leukaemia
     Dosage: CYCLE NUMBER 1
     Route: 065
     Dates: start: 20211109, end: 20211109
  15. OBINUTUZUMAB [Suspect]
     Active Substance: OBINUTUZUMAB
     Indication: Chronic lymphocytic leukaemia
     Dosage: CYCLE NUMBER 1
     Route: 065
     Dates: start: 20211116, end: 20211116
  16. OBINUTUZUMAB [Suspect]
     Active Substance: OBINUTUZUMAB
     Indication: Chronic lymphocytic leukaemia
     Dosage: CYCLE NUMBER 1
     Route: 065
     Dates: start: 20211122, end: 20211122
  17. OBINUTUZUMAB [Suspect]
     Active Substance: OBINUTUZUMAB
     Indication: Chronic lymphocytic leukaemia
     Dosage: CYCLE NUMBER 5
     Route: 065
     Dates: start: 20220301, end: 20220301
  18. OBINUTUZUMAB [Suspect]
     Active Substance: OBINUTUZUMAB
     Indication: Chronic lymphocytic leukaemia
     Dosage: CYCLE NUMBER 3
     Route: 065
     Dates: start: 20220104, end: 20220104
  19. METFORMIN HYDROCHLORIDE [Concomitant]
     Active Substance: METFORMIN HYDROCHLORIDE
     Indication: Diabetes mellitus
     Dates: start: 201410, end: 20220526
  20. CILAZAPRIL TEVA [Concomitant]
     Indication: Hypertension
     Dates: start: 202106, end: 20220526
  21. DEXAMETHASONE [Concomitant]
     Active Substance: DEXAMETHASONE
     Indication: Premedication
     Dates: start: 20211108, end: 20220301
  22. PROMETHAZINE [Concomitant]
     Active Substance: PROMETHAZINE HYDROCHLORIDE
     Indication: Premedication
     Dates: start: 20211108, end: 20220301

REACTIONS (2)
  - Urosepsis [Fatal]
  - Urinary tract infection [Recovered/Resolved]

NARRATIVE: CASE EVENT DATE: 20220201
